FAERS Safety Report 5649428-2 (Version None)
Quarter: 2008Q1

REPORT INFORMATION
  Report Type: 
  Country: None (occurrence: None)
  Receive Date: 20080303
  Receipt Date: 20080303
  Transmission Date: 20080703
  Serious: Yes (Life-Threatening, Hospitalization)
  Sender: FDA-Public Use
  Company Number: None

PATIENT
  Sex: Male
  Weight: 99.3377 kg

DRUGS (1)
  1. AZATHIOPRINE [Suspect]
     Indication: AUTOIMMUNE HEPATITIS
     Dosage: 2 - 50 MG TABLETS ONCE A DAY PO
     Route: 048
     Dates: start: 20080113, end: 20080131

REACTIONS (12)
  - ASTHENIA [None]
  - BLOOD PRESSURE FLUCTUATION [None]
  - BODY TEMPERATURE FLUCTUATION [None]
  - DYSPNOEA [None]
  - FATIGUE [None]
  - HEART RATE INCREASED [None]
  - ILL-DEFINED DISORDER [None]
  - INFECTION [None]
  - INFLUENZA LIKE ILLNESS [None]
  - LOSS OF CONSCIOUSNESS [None]
  - NAUSEA [None]
  - VOMITING [None]
